FAERS Safety Report 5624771-1 (Version None)
Quarter: 2008Q1

REPORT INFORMATION
  Report Type: 
  Country: None (occurrence: None)
  Receive Date: 20080213
  Receipt Date: 20080204
  Transmission Date: 20080703
  Serious: Yes (Hospitalization, Other)
  Sender: FDA-Public Use
  Company Number: ES-ABBOTT-08P-144-0434114-00

PATIENT
  Sex: Female

DRUGS (12)
  1. HUMIRA [Suspect]
     Indication: RHEUMATOID ARTHRITIS
     Route: 058
     Dates: start: 20041202, end: 20071001
  2. DEFLAZACORT [Concomitant]
     Indication: DRUG USE FOR UNKNOWN INDICATION
     Dates: start: 20050919
  3. INDOMETHACIN [Concomitant]
     Indication: DRUG USE FOR UNKNOWN INDICATION
     Dates: start: 19990101
  4. LANSOPRAZOLE [Concomitant]
     Indication: DRUG USE FOR UNKNOWN INDICATION
     Dates: start: 19990101
  5. LEKOVIT CA [Concomitant]
     Indication: DRUG USE FOR UNKNOWN INDICATION
     Dates: start: 19990101
  6. RISEDRONATE SODIUM [Concomitant]
     Indication: DRUG USE FOR UNKNOWN INDICATION
     Dates: start: 20060501
  7. IRBESARTAN [Concomitant]
     Indication: DRUG USE FOR UNKNOWN INDICATION
  8. SIMVASTATIN [Concomitant]
     Indication: DRUG USE FOR UNKNOWN INDICATION
  9. METHOTREXATE [Concomitant]
     Indication: DRUG USE FOR UNKNOWN INDICATION
     Dosage: 12.5 MG - 15 MG / WEEK
     Dates: start: 20000901, end: 20010501
  10. METHOTREXATE [Concomitant]
     Dosage: 12.5 MG - 15 MG / WEEK
     Dates: start: 20020401, end: 20021230
  11. METHOTREXATE [Concomitant]
     Dates: start: 20050310, end: 20060523
  12. DEFLAZACORT [Concomitant]
     Dosage: 6 - 15 MG DAILY
     Dates: start: 19990101

REACTIONS (2)
  - OVARIAN CANCER [None]
  - OVARIAN CANCER METASTATIC [None]
